FAERS Safety Report 15223500 (Version 1)
Quarter: 2018Q3

REPORT INFORMATION
  Report Type: Spontaneous
  Country: US (occurrence: US)
  Receive Date: 20180731
  Receipt Date: 20180731
  Transmission Date: 20181010
  Serious: No
  Sender: FDA-Public Use
  Company Number: US-ENDO PHARMACEUTICALS INC-2018-014369

PATIENT
  Age: 58 Year
  Sex: Male
  Weight: 102.4 kg

DRUGS (3)
  1. TESTOPEL [Suspect]
     Active Substance: TESTOSTERONE
     Indication: BLOOD TESTOSTERONE DECREASED
     Dosage: 1ST IMPLANTATION
     Route: 065
     Dates: start: 201609, end: 201609
  2. TESTOPEL [Suspect]
     Active Substance: TESTOSTERONE
     Dosage: 2ND IMPLANTATION
     Route: 065
     Dates: start: 2017, end: 2017
  3. TESTOPEL [Suspect]
     Active Substance: TESTOSTERONE
     Dosage: 3RD IMPLANTATION:12 PELLETS IN LEFT GLUTEAL MUSCLE
     Route: 065
     Dates: start: 20180109, end: 20180109

REACTIONS (4)
  - Muscular weakness [Unknown]
  - Implant site pain [Unknown]
  - Implant site paraesthesia [Unknown]
  - Prescribed overdose [Recovered/Resolved]

NARRATIVE: CASE EVENT DATE: 20180109
